FAERS Safety Report 7937910-4 (Version None)
Quarter: 2011Q4

REPORT INFORMATION
  Report Type: 
  Country: None (occurrence: None)
  Receive Date: 20111123
  Receipt Date: 20111108
  Transmission Date: 20120403
  Serious: Yes (Other)
  Sender: FDA-Public Use
  Company Number: US-WATSON-2011-18644

PATIENT
  Age: 77 Year
  Sex: Male

DRUGS (6)
  1. ROCURONIUM BROMIDE [Suspect]
     Indication: ANAESTHESIA
  2. PROPOFOL [Suspect]
     Indication: ANAESTHESIA
  3. MIDAZOLAM HCL [Suspect]
     Indication: ANAESTHESIA
     Dosage: 2 MG INDUCTION
  4. BUPIVACAINE HCL [Suspect]
     Indication: ANAESTHESIA
     Dosage: FENTANYL-BUPIVACAINE 0.125% AT 20 UG-HR (MINUS 1) (TOTAL OF 89 MG), BUPIVACAINE BOLUS (12.5 MG)
     Route: 008
  5. SEVOFLURANE [Suspect]
     Indication: ANAESTHESIA
  6. FENTANYL-100 [Suspect]
     Indication: ANAESTHESIA
     Dosage: FENTANYL-BUPIVACAINE 0.125% AT 20 UG-HR (MINUS 1) (TOTAL OF 89 MG)
     Route: 008

REACTIONS (2)
  - ELECTROCARDIOGRAM ABNORMAL [None]
  - CONDITION AGGRAVATED [None]
